FAERS Safety Report 12130248 (Version 1)
Quarter: 2016Q1

REPORT INFORMATION
  Report Type: Spontaneous
  Country: US (occurrence: None)
  Receive Date: 20160229
  Receipt Date: 20160229
  Transmission Date: 20160526
  Serious: Yes (Hospitalization)
  Sender: FDA-Public Use
  Company Number: None

PATIENT
  Age: 60 Year
  Sex: Male
  Weight: 122.47 kg

DRUGS (3)
  1. LIPITOR [Suspect]
     Active Substance: ATORVASTATIN CALCIUM
     Indication: TYPE 2 DIABETES MELLITUS
     Dosage: 1 PILL ONCE DAILY TAKEN BY MOUTH
     Route: 048
  2. LISINOPRIL.HYDROCHLORTHIAZIDE [Concomitant]
  3. DAILY VIATAMIN [Concomitant]

REACTIONS (5)
  - Arthralgia [None]
  - Pain [None]
  - Economic problem [None]
  - Myalgia [None]
  - Weight decreased [None]

NARRATIVE: CASE EVENT DATE: 20151226
